FAERS Safety Report 4287762-1 (Version None)
Quarter: 2004Q1

REPORT INFORMATION
  Report Type: 
  Country: None (occurrence: None)
  Receive Date: 20040209
  Receipt Date: 20030916
  Transmission Date: 20041129
  Serious: No
  Sender: FDA-Public Use
  Company Number: US-GLAXOSMITHKLINE-A0426112A

PATIENT
  Age: 27 Year
  Sex: Female

DRUGS (1)
  1. PAXIL [Suspect]
     Indication: DEPRESSION
     Dosage: 3.125MG PER DAY
     Route: 048
     Dates: start: 20021101

REACTIONS (6)
  - DISABILITY [None]
  - DIZZINESS [None]
  - MIGRAINE [None]
  - NAUSEA [None]
  - SENSORY DISTURBANCE [None]
  - WEIGHT INCREASED [None]
